FAERS Safety Report 4600085-3 (Version None)
Quarter: 2005Q1

REPORT INFORMATION
  Report Type: 
  Country: None (occurrence: None)
  Receive Date: 20050303
  Receipt Date: 20050216
  Transmission Date: 20050727
  Serious: Yes (Hospitalization)
  Sender: FDA-Public Use
  Company Number: US_0502112009

PATIENT
  Age: 46 Year
  Sex: Male
  Weight: 65 kg

DRUGS (1)
  1. CIALIS [Suspect]
     Dosage: 20 MG DAY
     Dates: start: 20041101

REACTIONS (2)
  - MYOCARDIAL INFARCTION [None]
  - SELF-MEDICATION [None]
